FAERS Safety Report 24972725 (Version 1)
Quarter: 2025Q1

REPORT INFORMATION
  Report Type: Spontaneous
  Country: MA (occurrence: MA)
  Receive Date: 20250215
  Receipt Date: 20250215
  Transmission Date: 20250409
  Serious: Yes (Hospitalization, Other)
  Sender: NOVITIUM PHARMA
  Company Number: MA-NOVITIUMPHARMA-2025MANVP00360

PATIENT
  Age: 14 Year

DRUGS (2)
  1. PAROXETINE [Suspect]
     Active Substance: PAROXETINE
     Indication: Depression
  2. RISPERIDONE [Concomitant]
     Active Substance: RISPERIDONE
     Indication: Depression

REACTIONS (1)
  - Neuroleptic malignant syndrome [Unknown]
